FAERS Safety Report 12476671 (Version 1)
Quarter: 2016Q2

REPORT INFORMATION
  Report Type: Spontaneous
  Country: MX (occurrence: MX)
  Receive Date: 20160617
  Receipt Date: 20160617
  Transmission Date: 20160815
  Serious: Yes (Hospitalization, Other)
  Sender: FDA-Public Use
  Company Number: MX-ELI_LILLY_AND_COMPANY-MX201510008345

PATIENT
  Age: 36 Year
  Sex: Female

DRUGS (4)
  1. HUMALOG MIX75/25 [Suspect]
     Active Substance: INSULIN LISPRO
     Dosage: 10 U, EACH EVENING
     Route: 058
     Dates: start: 201510
  2. HUMALOG [Suspect]
     Active Substance: INSULIN LISPRO
     Indication: GESTATIONAL DIABETES
     Dosage: 4 U, EACH MORNING
     Route: 058
     Dates: start: 20151021
  3. HUMALOG MIX75/25 [Suspect]
     Active Substance: INSULIN LISPRO
     Indication: DIABETES MELLITUS
     Dosage: 20 U, EACH MORNING
     Route: 058
     Dates: start: 201510
  4. FOLIC ACID. [Concomitant]
     Active Substance: FOLIC ACID
     Dosage: UNK

REACTIONS (3)
  - HELLP syndrome [Unknown]
  - Maternal exposure during pregnancy [Unknown]
  - Hypertension [Unknown]

NARRATIVE: CASE EVENT DATE: 20151021
